FAERS Safety Report 16297268 (Version 11)
Quarter: 2021Q2

REPORT INFORMATION
  Report Type: Report from Study
  Country: FR (occurrence: FR)
  Receive Date: 20190510
  Receipt Date: 20210614
  Transmission Date: 20210716
  Serious: Yes (Hospitalization)
  Sender: FDA-Public Use
  Company Number: FR-ROCHE-2311034

PATIENT
  Age: 60 Year
  Sex: Male
  Weight: 72 kg

DRUGS (22)
  1. ATEZOLIZUMAB. [Suspect]
     Active Substance: ATEZOLIZUMAB
     Indication: METASTASES TO CENTRAL NERVOUS SYSTEM
     Dosage: ON 11/APR/2021, AT 12.47, HE RECEIVED LAST DOSE OF ATEZOLIZUMAB (840 MG) PRIOR TO ONSET OF SERIOUS A
     Route: 041
     Dates: start: 20190411
  2. SULFAMETHOXAZOLE/TRIMETHOPRIM [Suspect]
     Active Substance: SULFAMETHOXAZOLE\TRIMETHOPRIM
     Indication: URINARY TRACT INFECTION
     Route: 048
     Dates: start: 20190411, end: 20190425
  3. DOLIPRANE [Concomitant]
     Active Substance: ACETAMINOPHEN
     Indication: TUMOUR PAIN
     Route: 048
  4. PRIMPERAN [Concomitant]
     Active Substance: METOCLOPRAMIDE HYDROCHLORIDE
     Dates: start: 20190617
  5. SMECTA [Concomitant]
     Active Substance: MONTMORILLONITE
     Route: 048
     Dates: start: 20190617
  6. PRIVALONE [Concomitant]
     Indication: TOXIC SKIN ERUPTION
  7. RAMIPRIL. [Concomitant]
     Active Substance: RAMIPRIL
     Route: 048
     Dates: start: 20190411, end: 201904
  8. COBIMETINIB. [Suspect]
     Active Substance: COBIMETINIB
     Indication: METASTASES TO CENTRAL NERVOUS SYSTEM
     Dosage: THREE TABLETS OF 20 MG EACH (AS PER PROTOCOL)?ON 11/APR/2021, HE RECEIVED LAST DOSE OF COBIMETINIB (
     Route: 048
     Dates: start: 20190411
  9. CORTANCYL [Concomitant]
     Active Substance: PREDNISONE
     Indication: CLUSTER HEADACHE
     Route: 048
     Dates: start: 20190617
  10. ELISOR [Concomitant]
     Active Substance: PRAVASTATIN SODIUM
     Indication: HYPERCHOLESTEROLAEMIA
     Route: 048
  11. BISOPROLOL [Concomitant]
     Active Substance: BISOPROLOL
     Indication: EJECTION FRACTION DECREASED
  12. UROREC [Concomitant]
     Active Substance: SILODOSIN
     Indication: URETHRAL STENOSIS
     Route: 048
  13. DIPROSONE [Concomitant]
     Active Substance: BETAMETHASONE DIPROPIONATE
     Route: 061
     Dates: start: 20190617
  14. PRIVALONE [Concomitant]
     Indication: RASH MACULO-PAPULAR
     Dosage: 1 OTHER
     Route: 048
     Dates: start: 20190418
  15. AVLOCARDYL [Concomitant]
     Active Substance: PROPRANOLOL HYDROCHLORIDE
     Indication: CLUSTER HEADACHE
     Route: 048
     Dates: end: 20190520
  16. BISOPROLOL [Concomitant]
     Active Substance: BISOPROLOL
     Indication: HYPERTENSION
     Route: 048
  17. AVODART [Concomitant]
     Active Substance: DUTASTERIDE
     Route: 048
  18. CEFIXIME. [Concomitant]
     Active Substance: CEFIXIME
     Route: 048
     Dates: end: 20190516
  19. AERIUS [Concomitant]
     Route: 048
     Dates: start: 20190617
  20. FAZOL (FRANCE) [Concomitant]
  21. TIORFAN [Concomitant]
     Active Substance: RACECADOTRIL
     Route: 048
     Dates: start: 20190423
  22. MOPRAL [Concomitant]
     Active Substance: OMEPRAZOLE
     Route: 048
     Dates: start: 20190617

REACTIONS (1)
  - Rash morbilliform [Recovered/Resolved]

NARRATIVE: CASE EVENT DATE: 20190411
